FAERS Safety Report 8186772-1 (Version None)
Quarter: 2012Q1

REPORT INFORMATION
  Report Type: 
  Country: None (occurrence: None)
  Receive Date: 20120306
  Receipt Date: 20120306
  Transmission Date: 20120608
  Serious: Yes (Life-Threatening, Hospitalization)
  Sender: FDA-Public Use
  Company Number: None

PATIENT
  Age: 61 Year
  Sex: Male
  Weight: 79.378 kg

DRUGS (3)
  1. RIBAVIRIN [Concomitant]
  2. PEGAGSYS [Concomitant]
  3. INCIVEK [Suspect]
     Indication: HEPATITIS C
     Dosage: INCIVEK
     Route: 048
     Dates: start: 20110908, end: 20111128

REACTIONS (19)
  - CARDIAC DISORDER [None]
  - INCORRECT DOSE ADMINISTERED [None]
  - DIZZINESS [None]
  - DYSPNOEA EXERTIONAL [None]
  - HEADACHE [None]
  - DRUG EFFECT DECREASED [None]
  - HEPATIC SIDEROSIS [None]
  - ECONOMIC PROBLEM [None]
  - ACTIVITIES OF DAILY LIVING IMPAIRED [None]
  - ANAEMIA [None]
  - DIABETES MELLITUS INADEQUATE CONTROL [None]
  - NECK PAIN [None]
  - TREATMENT FAILURE [None]
  - DRUG PRESCRIBING ERROR [None]
  - THERAPY CESSATION [None]
  - BLOOD PRESSURE INCREASED [None]
  - DYSSTASIA [None]
  - VIRAL LOAD INCREASED [None]
  - NERVE INJURY [None]
